FAERS Safety Report 5350117-2 (Version None)
Quarter: 2007Q2

REPORT INFORMATION
  Report Type: 
  Country: None (occurrence: None)
  Receive Date: 20070607
  Receipt Date: 20070605
  Transmission Date: 20071010
  Serious: Yes (Other)
  Sender: FDA-Public Use
  Company Number: NL-MERCK-0706NLD00003

PATIENT
  Age: 49 Year
  Sex: Male

DRUGS (1)
  1. HYZAAR [Suspect]
     Indication: HYPERTENSION
     Route: 048
     Dates: start: 20070503

REACTIONS (3)
  - ANGIOEDEMA [None]
  - FATIGUE [None]
  - OEDEMA [None]
